FAERS Safety Report 14558035 (Version 2)
Quarter: 2018Q1

REPORT INFORMATION
  Report Type: Spontaneous
  Country: FR (occurrence: FR)
  Receive Date: 20180221
  Receipt Date: 20180312
  Transmission Date: 20180509
  Serious: Yes (Death, Other)
  Sender: FDA-Public Use
  Company Number: FR-JNJFOC-20180227112

PATIENT
  Age: 56 Year
  Sex: Female

DRUGS (1)
  1. XARELTO [Suspect]
     Active Substance: RIVAROXABAN
     Indication: PULMONARY EMBOLISM
     Route: 048
     Dates: start: 20180203

REACTIONS (9)
  - Shock haemorrhagic [Fatal]
  - Disseminated intravascular coagulation [Unknown]
  - Lactic acidosis [Unknown]
  - Hypotension [Unknown]
  - Metabolic acidosis [Unknown]
  - Haemothorax [Fatal]
  - Cardio-respiratory arrest [Fatal]
  - Cardiac tamponade [Fatal]
  - Anaemia [Unknown]

NARRATIVE: CASE EVENT DATE: 201802
